FAERS Safety Report 19116808 (Version 1)
Quarter: 2021Q2

REPORT INFORMATION
  Report Type: Spontaneous
  Country: FR (occurrence: FR)
  Receive Date: 20210409
  Receipt Date: 20210409
  Transmission Date: 20210717
  Serious: Yes (Other)
  Sender: FDA-Public Use
  Company Number: FR-BIOVITRUM-2019FR1777

PATIENT
  Sex: Male
  Weight: 60 kg

DRUGS (2)
  1. KINERET [Suspect]
     Active Substance: ANAKINRA
     Indication: RASMUSSEN ENCEPHALITIS
  2. KINERET [Suspect]
     Active Substance: ANAKINRA
     Dosage: 6 MG/KG IN 4 INJECTIONS DAILY
     Route: 058
     Dates: start: 20190801

REACTIONS (2)
  - Off label use [Not Recovered/Not Resolved]
  - Drug-induced liver injury [Unknown]
